FAERS Safety Report 15226131 (Version 4)
Quarter: 2018Q3

REPORT INFORMATION
  Report Type: Report from Study
  Country: US (occurrence: US)
  Receive Date: 20180801
  Receipt Date: 20180824
  Transmission Date: 20181010
  Serious: Yes (Other)
  Sender: FDA-Public Use
  Company Number: US-ROCHE-2162766

PATIENT
  Sex: Female
  Weight: 58.57 kg

DRUGS (14)
  1. XOLAIR [Suspect]
     Active Substance: OMALIZUMAB
     Indication: URTICARIA
  2. WARFARIN [Concomitant]
     Active Substance: WARFARIN
     Indication: ANTICOAGULANT THERAPY
     Dosage: ONGOING: YES
     Route: 048
  3. SINGULAIR [Concomitant]
     Active Substance: MONTELUKAST SODIUM
     Dosage: ONGOING: YES
     Route: 065
  4. XANAX [Concomitant]
     Active Substance: ALPRAZOLAM
     Dosage: EVERY NIGHT ;ONGOING: YES
     Route: 065
  5. MOMETASONE [Concomitant]
     Active Substance: MOMETASONE
     Dosage: ONGOING: YES
     Route: 065
  6. LOSARTAN. [Concomitant]
     Active Substance: LOSARTAN
     Dosage: ONGOING: YES
     Route: 048
  7. AMLODIPINE [Concomitant]
     Active Substance: AMLODIPINE BESYLATE
     Dosage: ONGOING: YES
     Route: 048
  8. DESOXIMETASONE. [Concomitant]
     Active Substance: DESOXIMETASONE
     Dosage: ONGOING: YES
     Route: 065
  9. XOLAIR [Suspect]
     Active Substance: OMALIZUMAB
     Indication: PRURITUS
     Dosage: ONE INJECTION IN EACH ARM ONCE A MONTH
     Route: 058
     Dates: start: 201805, end: 201807
  10. ALLEGRA [Concomitant]
     Active Substance: FEXOFENADINE HYDROCHLORIDE
     Dosage: ONGOING: YES
     Route: 065
  11. ZANTAC [Concomitant]
     Active Substance: RANITIDINE HYDROCHLORIDE
     Dosage: ONGOING: YES
     Route: 065
  12. LORATADINE. [Concomitant]
     Active Substance: LORATADINE
     Dosage: ONGOING: YES
     Route: 065
  13. VALTREX [Concomitant]
     Active Substance: VALACYCLOVIR HYDROCHLORIDE
     Dosage: EVERY NOW AND THEN ;ONGOING: YES
     Route: 065
  14. ALCLOMETASONE [Concomitant]
     Active Substance: ALCLOMETASONE
     Dosage: ONGOING: YES
     Route: 065

REACTIONS (5)
  - Dyspnoea [Unknown]
  - Wheezing [Unknown]
  - Headache [Unknown]
  - Cough [Unknown]
  - Cataract [Unknown]
